FAERS Safety Report 14167488 (Version 2)
Quarter: 2017Q4

REPORT INFORMATION
  Report Type: Spontaneous
  Country: US (occurrence: US)
  Receive Date: 20171108
  Receipt Date: 20171228
  Transmission Date: 20180321
  Serious: No
  Sender: FDA-Public Use
  Company Number: US-BRISTOL-MYERS SQUIBB COMPANY-BMS-2017-100743

PATIENT
  Sex: Male

DRUGS (2)
  1. VYVANSE [Concomitant]
     Active Substance: LISDEXAMFETAMINE DIMESYLATE
     Indication: PRODUCT USED FOR UNKNOWN INDICATION
     Dosage: 20 MG, UNK
     Route: 065
  2. ABILIFY [Suspect]
     Active Substance: ARIPIPRAZOLE
     Indication: DISRUPTIVE MOOD DYSREGULATION DISORDER
     Dosage: 2 MG, UNK
     Route: 065
     Dates: start: 2017, end: 2017

REACTIONS (4)
  - Rash [Recovering/Resolving]
  - Abdominal discomfort [Recovered/Resolved]
  - Pruritus [Recovering/Resolving]
  - Product use in unapproved indication [Unknown]
